FAERS Safety Report 5092671-4 (Version None)
Quarter: 2006Q3

REPORT INFORMATION
  Report Type: 
  Country: None (occurrence: None)
  Receive Date: 20060825
  Receipt Date: 20060822
  Transmission Date: 20061208
  Serious: Yes (Hospitalization, Other)
  Sender: FDA-Public Use
  Company Number: A20060802

PATIENT
  Age: 68 Year
  Sex: Female

DRUGS (3)
  1. CRAVIT OPHTHALMIC SOLUTION (0.5% LEVOFLOXACIN OPHTHALMIC SOLUTION) [Suspect]
     Indication: INFECTION PROPHYLAXIS
     Dosage: 3 TIMES DAILY INTRAOCULAR INSTILLATION
     Route: 031
     Dates: start: 20060729, end: 20060730
  2. LOXONIN (LOXOPROFEN SODIUM TABLETS) [Concomitant]
  3. SELBEX (TEPRENONE CAPSULES) [Concomitant]

REACTIONS (2)
  - DRUG ERUPTION [None]
  - PYREXIA [None]
